FAERS Safety Report 16432383 (Version 1)
Quarter: 2019Q2

REPORT INFORMATION
  Report Type: Spontaneous
  Country: AU (occurrence: AU)
  Receive Date: 20190614
  Receipt Date: 20190614
  Transmission Date: 20190711
  Serious: Yes (Hospitalization, Other)
  Sender: FDA-Public Use
  Company Number: AU-BRISTOL-MYERS SQUIBB COMPANY-BMS-2019-056157

PATIENT
  Sex: Female

DRUGS (3)
  1. THYROXINE [Concomitant]
     Active Substance: LEVOTHYROXINE
     Indication: BASEDOW^S DISEASE
     Dosage: UNK MILLIGRAM
     Route: 065
  2. NIVOLUMAB [Suspect]
     Active Substance: NIVOLUMAB
     Indication: COLORECTAL CANCER STAGE IV
     Dosage: 44 MILLIGRAM
     Route: 065
     Dates: start: 20181203
  3. NIVOLUMAB [Suspect]
     Active Substance: NIVOLUMAB
     Indication: PRODUCT USED FOR UNKNOWN INDICATION
     Dosage: 40 MILLIGRAM
     Route: 065
     Dates: start: 20190604

REACTIONS (8)
  - Diarrhoea [Unknown]
  - Sinusitis [Unknown]
  - Dehydration [Unknown]
  - Infection [Unknown]
  - Vomiting [Unknown]
  - Fatigue [Unknown]
  - Syncope [Unknown]
  - Malignant neoplasm progression [Unknown]
